FAERS Safety Report 10878894 (Version 5)
Quarter: 2016Q4

REPORT INFORMATION
  Report Type: Report from Study
  Country: US (occurrence: US)
  Receive Date: 20150302
  Receipt Date: 20161010
  Transmission Date: 20170206
  Serious: Yes (Disabling, Other)
  Sender: FDA-Public Use
  Company Number: US-SA-2014SA010103

PATIENT
  Age: 60 Year
  Sex: Female

DRUGS (5)
  1. LORTAB [Concomitant]
     Active Substance: ACETAMINOPHEN\HYDROCODONE BITARTRATE
  2. GABAPENTIN. [Concomitant]
     Active Substance: GABAPENTIN
  3. AUBAGIO [Suspect]
     Active Substance: TERIFLUNOMIDE
     Indication: MULTIPLE SCLEROSIS
     Route: 048
     Dates: start: 20140117
  4. AUBAGIO [Suspect]
     Active Substance: TERIFLUNOMIDE
     Indication: MULTIPLE SCLEROSIS
     Route: 048
     Dates: start: 20140126, end: 20140310
  5. AUBAGIO [Suspect]
     Active Substance: TERIFLUNOMIDE
     Indication: MULTIPLE SCLEROSIS
     Route: 048

REACTIONS (22)
  - Stomatitis [Not Recovered/Not Resolved]
  - Lip swelling [Unknown]
  - Rash macular [Unknown]
  - Arthralgia [Unknown]
  - Off label use [Unknown]
  - Visual impairment [Unknown]
  - Memory impairment [Not Recovered/Not Resolved]
  - Malaise [Recovered/Resolved]
  - Sleep disorder [Not Recovered/Not Resolved]
  - Urinary tract infection [Unknown]
  - Paraesthesia [Not Recovered/Not Resolved]
  - Neck pain [Unknown]
  - Local swelling [Unknown]
  - Vision blurred [Unknown]
  - Blood test abnormal [Unknown]
  - Memory impairment [Unknown]
  - Pain in extremity [Unknown]
  - Somnolence [Not Recovered/Not Resolved]
  - Pruritus [Unknown]
  - Dry mouth [Not Recovered/Not Resolved]
  - Hypoaesthesia [Unknown]
  - Rash [Recovered/Resolved]

NARRATIVE: CASE EVENT DATE: 2014
